FAERS Safety Report 22003126 (Version 1)
Quarter: 2023Q1

REPORT INFORMATION
  Report Type: Spontaneous
  Country: GB (occurrence: GB)
  Receive Date: 20230217
  Receipt Date: 20230217
  Transmission Date: 20230417
  Serious: Yes (Other)
  Sender: FDA-Public Use
  Company Number: GB-MHRA-MED-202302070447122270-VFYMP

PATIENT
  Sex: Female

DRUGS (1)
  1. AMIODARONE [Suspect]
     Active Substance: AMIODARONE
     Indication: Arrhythmia
     Dosage: 50 OR 100 MG, TWO TIMES A DAY
     Route: 065
     Dates: start: 20220312, end: 20220317

REACTIONS (4)
  - Pruritus [Not Recovered/Not Resolved]
  - Pharyngeal paraesthesia [Not Recovered/Not Resolved]
  - Paraesthesia oral [Not Recovered/Not Resolved]
  - Burn of internal organs [Not Recovered/Not Resolved]

NARRATIVE: CASE EVENT DATE: 20220315
